FAERS Safety Report 6501458-4 (Version None)
Quarter: 2009Q4

REPORT INFORMATION
  Report Type: 
  Country: None (occurrence: None)
  Receive Date: 20091215
  Receipt Date: 20091215
  Transmission Date: 20100525
  Serious: Yes (Hospitalization)
  Sender: FDA-Public Use
  Company Number: None

PATIENT
  Age: 22 Year
  Sex: Female
  Weight: 57.6068 kg

DRUGS (2)
  1. ZYPREXA [Suspect]
     Indication: SCHIZOAFFECTIVE DISORDER
     Dosage: 15 MG 1X DAILY PO
     Route: 048
     Dates: start: 20050705, end: 20091110
  2. ZYPREXA [Suspect]
     Dosage: 30 MG 1X DAILY PO
     Route: 048
     Dates: start: 20051110, end: 20090211

REACTIONS (1)
  - AGGRESSION [None]
